FAERS Safety Report 8524870-0 (Version None)
Quarter: 2012Q3

REPORT INFORMATION
  Report Type: 
  Country: None (occurrence: None)
  Receive Date: 20120720
  Receipt Date: 20120713
  Transmission Date: 20120928
  Serious: Yes (Life-Threatening, Hospitalization, Other)
  Sender: FDA-Public Use
  Company Number: PHHY2012JP027145

PATIENT
  Sex: Male
  Weight: 82 kg

DRUGS (9)
  1. FERROUS CITRATE [Concomitant]
     Dosage: 2 DF, UNK
     Route: 048
     Dates: start: 20110801
  2. AMLODIPINE/VALSARTAN [Suspect]
     Indication: HYPERTENSION
     Dosage: 1 DF, DAILY
     Route: 048
     Dates: start: 20110111
  3. PANTOSIN [Concomitant]
     Dosage: 600 MG, UNK
     Route: 048
  4. WARFARIN SODIUM [Suspect]
     Dosage: 2.5 MG, DAILY
     Route: 048
     Dates: end: 20111222
  5. FAMOTIDINE [Concomitant]
     Dosage: 20 MG, UNK
     Route: 048
     Dates: end: 20110816
  6. SENNOSIDE [Concomitant]
     Dosage: 2 DF, UNK
     Route: 048
     Dates: end: 20110505
  7. RABEPRAZOLE SODIUM [Concomitant]
     Dosage: 20 MG, UNK
     Route: 048
     Dates: start: 20110817
  8. YODEL [Concomitant]
     Dosage: 2 DF, UNK
     Route: 048
     Dates: start: 20110506
  9. RABEPRAZOLE SODIUM [Concomitant]
     Dosage: 10 MG, UNK
     Route: 048

REACTIONS (7)
  - PNEUMONIA [None]
  - BLOOD PRESSURE FLUCTUATION [None]
  - CEREBRAL HAEMORRHAGE [None]
  - HYPOKINESIA [None]
  - STRESS [None]
  - DYSSTASIA [None]
  - DIZZINESS [None]
